FAERS Safety Report 21448953 (Version 1)
Quarter: 2022Q4

REPORT INFORMATION
  Report Type: Spontaneous
  Country: US (occurrence: US)
  Receive Date: 20221013
  Receipt Date: 20221013
  Transmission Date: 20230113
  Serious: No
  Sender: FDA-Public Use
  Company Number: US-ORGANON-O2210USA000570

PATIENT
  Sex: Female

DRUGS (3)
  1. FOLLISTIM AQ [Suspect]
     Active Substance: FOLLITROPIN
     Dosage: UNK
  2. FOLLISTIM AQ [Suspect]
     Active Substance: FOLLITROPIN
  3. FOLLISTIM AQ [Suspect]
     Active Substance: FOLLITROPIN
     Dosage: UNK

REACTIONS (4)
  - Product storage error [Unknown]
  - Product dose omission issue [Unknown]
  - Circumstance or information capable of leading to medication error [Unknown]
  - No adverse event [Unknown]

NARRATIVE: CASE EVENT DATE: 20221001
